FAERS Safety Report 4375998-0 (Version None)
Quarter: 2004Q2

REPORT INFORMATION
  Report Type: 
  Country: None (occurrence: None)
  Receive Date: 20040609
  Receipt Date: 20040609
  Transmission Date: 20050107
  Serious: Yes (Hospitalization)
  Sender: FDA-Public Use
  Company Number: None

PATIENT
  Age: 87 Year
  Sex: Male
  Weight: 76.5218 kg

DRUGS (10)
  1. COUMADIN [Suspect]
     Dosage: 2.5 MG DAILY ORAL
     Route: 048
  2. AMIODARONE HCL [Concomitant]
  3. BUMETANIDE [Concomitant]
  4. CARVEDILOL [Concomitant]
  5. HYDROXYZINE [Concomitant]
  6. LEVOTHYROXINE SODIUM [Concomitant]
  7. LOSARTAN POTASSIUM [Concomitant]
  8. SPIRONOLACTONE [Concomitant]
  9. TEMAZEPAM [Concomitant]
  10. COUMADIN [Concomitant]

REACTIONS (3)
  - INTERNATIONAL NORMALISED RATIO INCREASED [None]
  - SKIN LACERATION [None]
  - WOUND SECRETION [None]
